FAERS Safety Report 22594290 (Version 1)
Quarter: 2023Q2

REPORT INFORMATION
  Report Type: Spontaneous
  Country: CN (occurrence: None)
  Receive Date: 20230613
  Receipt Date: 20230613
  Transmission Date: 20230722
  Serious: Yes (Other)
  Sender: FDA-Public Use
  Company Number: CN-ROCHE-3367794

PATIENT
  Age: 47 Year
  Sex: Female

DRUGS (4)
  1. HERCEPTIN [Suspect]
     Active Substance: TRASTUZUMAB
     Indication: Gastric cancer
     Dosage: FOLLOWED BY 300 MG
     Route: 041
     Dates: start: 20230526
  2. OXALIPLATIN [Suspect]
     Active Substance: OXALIPLATIN
     Indication: Gastric ulcer
     Route: 041
     Dates: start: 20230526
  3. FLUOROURACIL [Suspect]
     Active Substance: FLUOROURACIL
     Indication: Gastric ulcer
     Route: 041
     Dates: start: 20230526
  4. FLUOROURACIL [Suspect]
     Active Substance: FLUOROURACIL
     Dosage: CONTINUOUS INTRAVENOUS DRIP FOR 48H
     Route: 041
     Dates: start: 20230526

REACTIONS (1)
  - Myelosuppression [Recovering/Resolving]

NARRATIVE: CASE EVENT DATE: 20230529
